FAERS Safety Report 5220539-9 (Version None)
Quarter: 2007Q1

REPORT INFORMATION
  Report Type: 
  Country: None (occurrence: None)
  Receive Date: 20070126
  Receipt Date: 20070122
  Transmission Date: 20070707
  Serious: Yes (Other)
  Sender: FDA-Public Use
  Company Number: PHEH2006US15450

PATIENT
  Age: 78 Year
  Sex: Female

DRUGS (2)
  1. AREDIA [Suspect]
     Dosage: 90 MG TO 60 MG  QMON
     Dates: start: 20060710, end: 20061026
  2. ZOMETA [Suspect]
     Dosage: 4MG TO 3MG  QMON
     Dates: start: 20030619, end: 20060612

REACTIONS (1)
  - OSTEONECROSIS [None]
